FAERS Safety Report 18620786 (Version 1)
Quarter: 2020Q4

REPORT INFORMATION
  Report Type: Spontaneous
  Country: JP (occurrence: JP)
  Receive Date: 20201216
  Receipt Date: 20201216
  Transmission Date: 20210114
  Serious: Yes (Other)
  Sender: FDA-Public Use
  Company Number: JP-ALVOGEN-2020-ALVOGEN-115488

PATIENT
  Age: 4 Year
  Sex: Male

DRUGS (2)
  1. CLINDAMYCIN. [Suspect]
     Active Substance: CLINDAMYCIN
     Indication: EYE INFECTION TOXOPLASMAL
     Dosage: 20 MG/KG, 1X/DAY
  2. PYRIMETHAMINE [Concomitant]
     Active Substance: PYRIMETHAMINE
     Indication: PRODUCT USED FOR UNKNOWN INDICATION

REACTIONS (2)
  - Liver injury [Recovering/Resolving]
  - Off label use [Unknown]
